FAERS Safety Report 11021103 (Version 1)
Quarter: 2015Q2

REPORT INFORMATION
  Report Type: Spontaneous
  Country: US (occurrence: US)
  Receive Date: 20150413
  Receipt Date: 20150413
  Transmission Date: 20150821
  Serious: No
  Sender: FDA-Public Use
  Company Number: US-ASTRAZENECA-2015SE32706

PATIENT
  Age: 72 Year
  Sex: Female
  Weight: 72.6 kg

DRUGS (3)
  1. ARIMIDEX [Suspect]
     Active Substance: ANASTROZOLE
     Indication: INVASIVE DUCTAL BREAST CARCINOMA
     Route: 048
     Dates: start: 201405
  2. TAMOXIFEN [Suspect]
     Active Substance: TAMOXIFEN
     Indication: BREAST CANCER METASTATIC
     Route: 048
     Dates: start: 201403, end: 2014
  3. ARIMIDEX [Suspect]
     Active Substance: ANASTROZOLE
     Indication: DRUG INEFFECTIVE
     Route: 048
     Dates: start: 201405

REACTIONS (8)
  - Intentional product misuse [Unknown]
  - Insomnia [Unknown]
  - Abdominal discomfort [Unknown]
  - Bone disorder [Unknown]
  - Osteoporosis [Unknown]
  - Rash [Unknown]
  - Drug ineffective [Unknown]
  - Lymphadenopathy [Unknown]

NARRATIVE: CASE EVENT DATE: 201403
